FAERS Safety Report 7669316-X (Version None)
Quarter: 2011Q3

REPORT INFORMATION
  Report Type: 
  Country: None (occurrence: None)
  Receive Date: 20110808
  Receipt Date: 20110804
  Transmission Date: 20111222
  Serious: Yes (Death)
  Sender: FDA-Public Use
  Company Number: PHHY2011CA69520

PATIENT
  Sex: Female

DRUGS (3)
  1. ZOMETA [Suspect]
     Indication: METASTASES TO BONE
     Dosage: 4 MG, EVERY 8 WEEKS
     Route: 042
     Dates: start: 20010604
  2. ZOMETA [Suspect]
     Dosage: 4 MG MONTHLY
     Route: 042
     Dates: start: 20090706, end: 20110518
  3. ZOMETA [Suspect]
     Dosage: 4 MG, EVERY 8 WEEKS
     Dates: start: 20110726

REACTIONS (2)
  - NEOPLASM PROGRESSION [None]
  - NEOPLASM MALIGNANT [None]
